FAERS Safety Report 11592328 (Version 1)
Quarter: 2015Q4

REPORT INFORMATION
  Report Type: Spontaneous
  Country: US (occurrence: US)
  Receive Date: 20151005
  Receipt Date: 20151005
  Transmission Date: 20160304
  Serious: Yes (Other)
  Sender: FDA-Public Use
  Company Number: US-SHIRE-US201512188

PATIENT
  Sex: Female

DRUGS (10)
  1. LIALDA [Suspect]
     Active Substance: MESALAMINE
     Indication: COLITIS ULCERATIVE
     Dosage: 2.4 G (TWO 1.2 G TABLETS), 2X/DAY:BID
     Route: 048
     Dates: end: 201503
  2. HUMIRA [Concomitant]
     Active Substance: ADALIMUMAB
     Dosage: UNK, 1X/WEEK
     Route: 065
  3. LIALDA [Suspect]
     Active Substance: MESALAMINE
     Dosage: 2.4 MG, 1X/DAY:QD
     Route: 048
     Dates: start: 201504, end: 201509
  4. LIALDA [Suspect]
     Active Substance: MESALAMINE
     Dosage: 2.4 G, 1X/DAY:QD
     Route: 048
     Dates: end: 201503
  5. HUMIRA [Concomitant]
     Active Substance: ADALIMUMAB
     Indication: PRODUCT USED FOR UNKNOWN INDICATION
     Dosage: UNK, OTHER (EVERY OTHER WEEK)
     Route: 065
     Dates: start: 201411, end: 201508
  6. LIALDA [Suspect]
     Active Substance: MESALAMINE
     Dosage: 4.8 G (FOUR 1.2 G TABLETS)
     Route: 048
     Dates: start: 201503, end: 201504
  7. LIALDA [Suspect]
     Active Substance: MESALAMINE
     Dosage: UNK, UNKNOWN
     Route: 048
     Dates: start: 201509, end: 20150925
  8. LIALDA [Suspect]
     Active Substance: MESALAMINE
     Dosage: 2.4 MG, 2X/DAY:BID
     Route: 048
     Dates: start: 201504, end: 201509
  9. KEFLEX [Suspect]
     Active Substance: CEPHALEXIN
     Indication: FOOT DEFORMITY
     Dosage: UNK, UNKNOWN
     Route: 065
     Dates: start: 201502
  10. HUMIRA [Concomitant]
     Active Substance: ADALIMUMAB
     Dosage: UNK, 1X/WEEK
     Route: 065
     Dates: start: 201509

REACTIONS (14)
  - Colitis ulcerative [Recovered/Resolved]
  - Gastrooesophageal reflux disease [Not Recovered/Not Resolved]
  - Musculoskeletal stiffness [Unknown]
  - Movement disorder [Recovering/Resolving]
  - Musculoskeletal pain [Unknown]
  - Alopecia [Not Recovered/Not Resolved]
  - Foot deformity [Recovered/Resolved]
  - Hypertension [Not Recovered/Not Resolved]
  - Inappropriate schedule of drug administration [Recovered/Resolved]
  - Rheumatoid arthritis [Unknown]
  - Arthropathy [Recovered/Resolved]
  - Osteoarthritis [Unknown]
  - Feeling abnormal [Unknown]
  - Raynaud^s phenomenon [Not Recovered/Not Resolved]

NARRATIVE: CASE EVENT DATE: 2014
